FAERS Safety Report 7990702 (Version 3)
Quarter: 2013Q2

REPORT INFORMATION
  Report Type: Report from Study
  Country: GB (occurrence: GB)
  Receive Date: 20110614
  Receipt Date: 20130423
  Transmission Date: 20140414
  Serious: Yes (Hospitalization)
  Sender: FDA-Public Use
  Company Number: GB-BRISTOL-MYERS SQUIBB COMPANY-15802424

PATIENT
  Age: 68 Year
  Sex: Male

DRUGS (5)
  1. IPILIMUMAB [Suspect]
     Indication: MALIGNANT MELANOMA
     Dosage: 06AUG10-08OCT10?21JAN11-08APR11
     Route: 042
     Dates: start: 20100806, end: 20110408
  2. BLINDED: PLACEBO [Suspect]
     Indication: MALIGNANT MELANOMA
     Dates: start: 20100806, end: 20110408
  3. OMEPRAZOLE [Concomitant]
     Dates: start: 20110101
  4. LEVOTHYROXINE [Concomitant]
     Dates: start: 20110429
  5. HYDROCORTISONE [Concomitant]
     Dosage: 1 DF= 10MG,5MG,5MG.
     Dates: start: 20110505

REACTIONS (1)
  - Autoimmune neuropathy [Recovered/Resolved with Sequelae]
